FAERS Safety Report 20467534 (Version 1)
Quarter: 2022Q1

REPORT INFORMATION
  Report Type: Spontaneous
  Country: US (occurrence: US)
  Receive Date: 20220214
  Receipt Date: 20220214
  Transmission Date: 20220423
  Serious: No
  Sender: FDA-Public Use
  Company Number: US-APOTEX-2021AP014150

PATIENT

DRUGS (1)
  1. MODAFINIL [Suspect]
     Active Substance: MODAFINIL
     Indication: Narcolepsy
     Dosage: 2 DOSAGE FORM
     Route: 065

REACTIONS (3)
  - Somnolence [Unknown]
  - Product quality issue [Unknown]
  - Drug ineffective [Unknown]
